FAERS Safety Report 12376356 (Version 1)
Quarter: 2016Q2

REPORT INFORMATION
  Report Type: Spontaneous
  Country: US (occurrence: None)
  Receive Date: 20160516
  Receipt Date: 20160516
  Transmission Date: 20160815
  Serious: No
  Sender: FDA-Public Use
  Company Number: None

PATIENT
  Age: 64 Year
  Sex: Male

DRUGS (1)
  1. OXYCODONE, 15 ZYGENERICS [Suspect]
     Active Substance: OXYCODONE
     Indication: PAIN
     Route: 048
     Dates: start: 20160413, end: 20160512

REACTIONS (2)
  - Product quality issue [None]
  - Pruritus [None]

NARRATIVE: CASE EVENT DATE: 20160413
